FAERS Safety Report 7537886-8 (Version None)
Quarter: 2011Q2

REPORT INFORMATION
  Report Type: 
  Country: None (occurrence: None)
  Receive Date: 20110609
  Receipt Date: 20110526
  Transmission Date: 20111010
  Serious: Yes (Disabling, Other)
  Sender: FDA-Public Use
  Company Number: US-SANOFI-AVENTIS-2011SA036033

PATIENT
  Age: 65 Year
  Sex: Male

DRUGS (8)
  1. SOLOSTAR [Suspect]
  2. SOLOSTAR [Suspect]
  3. LANTUS [Suspect]
     Route: 058
  4. LANTUS [Suspect]
     Route: 058
  5. LANTUS [Suspect]
     Route: 058
  6. SOLOSTAR [Suspect]
  7. LANTUS [Suspect]
     Route: 058
  8. SOLOSTAR [Suspect]

REACTIONS (1)
  - AORTIC ANEURYSM [None]
